FAERS Safety Report 6645473-9 (Version None)
Quarter: 2010Q1

REPORT INFORMATION
  Report Type: 
  Country: None (occurrence: None)
  Receive Date: 20100323
  Receipt Date: 20100312
  Transmission Date: 20100710
  Serious: Yes (Hospitalization)
  Sender: FDA-Public Use
  Company Number: US-ASTRAZENECA-2010SE11201

PATIENT
  Sex: Female

DRUGS (1)
  1. SYMBICORT [Suspect]
     Dosage: TOTAL DAILY DOSE: 640 UG
     Route: 055
     Dates: start: 20090101

REACTIONS (3)
  - DYSPHONIA [None]
  - PNEUMONIA [None]
  - WHEEZING [None]
